FAERS Safety Report 11796534 (Version 1)
Quarter: 2015Q4

REPORT INFORMATION
  Report Type: Spontaneous
  Country: US (occurrence: None)
  Receive Date: 20151202
  Receipt Date: 20151202
  Transmission Date: 20160305
  Serious: No
  Sender: FDA-Public Use
  Company Number: None

PATIENT
  Age: 48 Year
  Sex: Male

DRUGS (4)
  1. WARFARIN [Concomitant]
     Active Substance: WARFARIN
  2. MORPHINE [Concomitant]
     Active Substance: MORPHINE
  3. HYDROMORPHON [Concomitant]
     Active Substance: HYDROMORPHONE
  4. SUTENT [Suspect]
     Active Substance: SUNITINIB MALATE
     Indication: RENAL CANCER
     Route: 048
     Dates: start: 20151020

REACTIONS (6)
  - Body temperature fluctuation [None]
  - Vomiting [None]
  - Dysgeusia [None]
  - Decreased appetite [None]
  - Nausea [None]
  - Diarrhoea [None]

NARRATIVE: CASE EVENT DATE: 20151109
